FAERS Safety Report 21830208 (Version 1)
Quarter: 2023Q1

REPORT INFORMATION
  Report Type: Spontaneous
  Country: FR (occurrence: FR)
  Receive Date: 20230106
  Receipt Date: 20230106
  Transmission Date: 20230418
  Serious: Yes (Hospitalization)
  Sender: FDA-Public Use
  Company Number: None

PATIENT
  Age: 75 Year
  Sex: Male
  Weight: 58 kg

DRUGS (6)
  1. TAHOR [Suspect]
     Active Substance: ATORVASTATIN CALCIUM
     Indication: Ischaemic stroke
     Dosage: 40 MILLIGRAM, QD (1 TABLET PER DAY)
     Route: 048
     Dates: start: 20210509, end: 20210513
  2. NADROPARIN CALCIUM [Suspect]
     Active Substance: NADROPARIN CALCIUM
     Indication: Product used for unknown indication
     Dosage: UNK
     Route: 058
     Dates: start: 20210422, end: 20210514
  3. GADOLINIUM [Suspect]
     Active Substance: GADOLINIUM
     Indication: Magnetic resonance imaging
     Dosage: 1 DOSAGE FORM (1 DOSE)
     Route: 042
     Dates: start: 20210505, end: 20210505
  4. ESOMEPRAZOLE [Suspect]
     Active Substance: ESOMEPRAZOLE
     Indication: Gastritis
     Dosage: 80 MILLIGRAM, QD (40 MG MORNING AND EVENING)
     Route: 048
     Dates: start: 20210426, end: 20210513
  5. KARDEGIC [Suspect]
     Active Substance: ASPIRIN DL-LYSINE
     Indication: Ischaemic stroke
     Dosage: 75 MILLIGRAM, QD (1 SACHET A DAY)
     Route: 048
     Dates: start: 20210504
  6. IOMERON [Suspect]
     Active Substance: IOMEPROL
     Indication: Magnetic resonance imaging
     Dosage: 1 DOSAGE FORM (1 DOSE)
     Route: 042
     Dates: start: 202104, end: 202104

REACTIONS (1)
  - Acute generalised exanthematous pustulosis [Recovered/Resolved]

NARRATIVE: CASE EVENT DATE: 20210511
